FAERS Safety Report 9357772 (Version 3)
Quarter: 2013Q3

REPORT INFORMATION
  Report Type: Spontaneous
  Country: IT (occurrence: IT)
  Receive Date: 20130620
  Receipt Date: 20130702
  Transmission Date: 20140515
  Serious: Yes (Death)
  Sender: FDA-Public Use
  Company Number: IT-PFIZER INC-2013178657

PATIENT
  Age: 62 Year
  Sex: Male

DRUGS (7)
  1. CAMPTO [Suspect]
     Indication: NEOPLASM MALIGNANT
     Dosage: CYCLIC
     Dates: start: 20130506
  2. CAMPTO [Suspect]
     Dosage: CYCLIC
     Dates: start: 20130529
  3. CISPLATIN [Suspect]
     Indication: NEOPLASM MALIGNANT
     Dosage: CYCLIC
     Dates: start: 20130506
  4. CISPLATIN [Suspect]
     Dosage: CYCLIC
     Dates: start: 20130529
  5. OMEPRAZOLE [Concomitant]
  6. DELTACORTENE [Concomitant]
     Dosage: 50 MG, 1X/DAY
  7. KEPPRA [Concomitant]
     Dosage: 1 G, 1X/DAY

REACTIONS (3)
  - Death [Fatal]
  - Myalgia [Not Recovered/Not Resolved]
  - Muscle spasms [Not Recovered/Not Resolved]
